FAERS Safety Report 4519891-9 (Version None)
Quarter: 2004Q4

REPORT INFORMATION
  Report Type: 
  Country: None (occurrence: None)
  Receive Date: 20041202
  Receipt Date: 20041202
  Transmission Date: 20050328
  Serious: No
  Sender: FDA-Public Use
  Company Number: None

PATIENT
  Age: 30 Year
  Sex: Male
  Weight: 70.3075 kg

DRUGS (1)
  1. STRATTERA [Suspect]

REACTIONS (2)
  - DYSURIA [None]
  - PROSTATIC DISORDER [None]
